FAERS Safety Report 21161982 (Version 2)
Quarter: 2022Q3

REPORT INFORMATION
  Report Type: Spontaneous
  Country: US (occurrence: US)
  Receive Date: 20220802
  Receipt Date: 20220830
  Transmission Date: 20221027
  Serious: Yes (Hospitalization, Other)
  Sender: FDA-Public Use
  Company Number: US-Accord-271711

PATIENT
  Age: 40 Year
  Sex: Female

DRUGS (4)
  1. TACROLIMUS [Interacting]
     Active Substance: TACROLIMUS
     Indication: Immunosuppressant drug therapy
     Dosage: 3 MG AM/ 2 MG PM/ 1 MG 12 HOUR
     Dates: start: 202201
  2. NIRMATRELVIR\RITONAVIR [Interacting]
     Active Substance: NIRMATRELVIR\RITONAVIR
     Indication: COVID-19
     Dosage: 150/ 100 MG TWICE DAILY AND RECEIVED FOUR DOSES
     Dates: start: 202201, end: 202201
  3. MYCOPHENOLATE SODIUM [Concomitant]
     Active Substance: MYCOPHENOLATE SODIUM
     Indication: Immunosuppressant drug therapy
     Dosage: TWICE DAILY, ENTERIC COATED
     Dates: start: 202201, end: 202201
  4. TACROLIMUS [Interacting]
     Active Substance: TACROLIMUS
     Indication: Immunosuppressant drug therapy
     Dosage: 1 MG TWICE DAILY UPON ADMISSION
     Dates: end: 202201

REACTIONS (4)
  - Acute kidney injury [Recovered/Resolved]
  - Hypertransaminasaemia [Recovering/Resolving]
  - Drug interaction [Unknown]
  - Drug level increased [Recovered/Resolved]

NARRATIVE: CASE EVENT DATE: 20220101
